FAERS Safety Report 11618490 (Version 2)
Quarter: 2015Q4

REPORT INFORMATION
  Report Type: Report from Study
  Country: BR (occurrence: BR)
  Receive Date: 20151012
  Receipt Date: 20151113
  Transmission Date: 20160304
  Serious: Yes (Hospitalization, Other)
  Sender: FDA-Public Use
  Company Number: BR-ROCHE-1386203

PATIENT
  Age: 53 Year
  Sex: Female
  Weight: 57 kg

DRUGS (6)
  1. CYCLOBENZAPRINE [Concomitant]
     Active Substance: CYCLOBENZAPRINE
     Indication: FIBROMYALGIA
     Route: 065
  2. TRAMAL [Concomitant]
     Active Substance: TRAMADOL
     Route: 042
  3. FOLIC ACID. [Concomitant]
     Active Substance: FOLIC ACID
     Route: 065
  4. MABTHERA [Suspect]
     Active Substance: RITUXIMAB
     Indication: RHEUMATOID ARTHRITIS
     Dosage: LAST INFUSION RECEIVED ON 25/NOV/2014, LAST INFUSION RECEIVED ON 25/MAY/2015
     Route: 042
     Dates: start: 20131029
  5. DIPYRONE [Concomitant]
     Active Substance: DIPYRONE
     Route: 042
  6. BUSCOPAN COMPOSTO [Concomitant]
     Route: 042

REACTIONS (10)
  - Pharyngitis [Unknown]
  - Influenza [Unknown]
  - Renal disorder [Unknown]
  - Anaemia [Unknown]
  - Urinary tract infection [Recovered/Resolved]
  - Renal colic [Recovered/Resolved]
  - Weight decreased [Unknown]
  - Urinary tract infection [Recovered/Resolved]
  - Hypersensitivity [Unknown]
  - Uterine infection [Unknown]

NARRATIVE: CASE EVENT DATE: 201404
